FAERS Safety Report 26074945 (Version 1)
Quarter: 2025Q4

REPORT INFORMATION
  Report Type: Spontaneous
  Country: US (occurrence: US)
  Receive Date: 20251121
  Receipt Date: 20251121
  Transmission Date: 20260118
  Serious: Yes (Other)
  Sender: SANDOZ
  Company Number: US-SANDOZ-SDZ2025US087143

PATIENT
  Age: 74 Year

DRUGS (1)
  1. RECLAST [Suspect]
     Active Substance: ZOLEDRONIC ACID
     Indication: Product used for unknown indication
     Dosage: UNK
     Route: 065
     Dates: start: 202410

REACTIONS (6)
  - Upper limb fracture [Unknown]
  - Joint injury [Unknown]
  - Surgery [Unknown]
  - Fall [Unknown]
  - Emotional distress [Unknown]
  - Anaemia [Unknown]

NARRATIVE: CASE EVENT DATE: 20241201
